FAERS Safety Report 6035938-5 (Version None)
Quarter: 2009Q1

REPORT INFORMATION
  Report Type: 
  Country: None (occurrence: None)
  Receive Date: 20090113
  Receipt Date: 20090108
  Transmission Date: 20090719
  Serious: Yes (Hospitalization)
  Sender: FDA-Public Use
  Company Number: B0553790A

PATIENT
  Age: 83 Year
  Sex: Female

DRUGS (10)
  1. VOXRA [Suspect]
     Indication: DEPRESSION
     Dosage: 300MG PER DAY
     Route: 048
     Dates: start: 20081104, end: 20081110
  2. CIPRALEX [Concomitant]
  3. MEMANTINE HCL [Concomitant]
  4. FOLACIN [Concomitant]
  5. SPARKAL [Concomitant]
  6. OXASCAND [Concomitant]
  7. TROMBYL [Concomitant]
  8. EXELON [Concomitant]
  9. CYANOCOBALAMIN [Concomitant]
  10. LEVOTHYROXINE SODIUM [Concomitant]

REACTIONS (5)
  - DEHYDRATION [None]
  - DIARRHOEA [None]
  - FALL [None]
  - GASTROENTERITIS [None]
  - ORTHOSTATIC HYPOTENSION [None]
